FAERS Safety Report 19837300 (Version 1)
Quarter: 2021Q3

REPORT INFORMATION
  Report Type: Spontaneous
  Country: US (occurrence: US)
  Receive Date: 20210915
  Receipt Date: 20210915
  Transmission Date: 20211014
  Serious: Yes (Death)
  Sender: FDA-Public Use
  Company Number: US-REDHILL BIOPHARMA-2021RDH00155

PATIENT
  Sex: Female

DRUGS (11)
  1. ALLOPURINOL. [Concomitant]
     Active Substance: ALLOPURINOL
  2. OMEPRAZOLE. [Concomitant]
     Active Substance: OMEPRAZOLE
  3. LEVEMIR [Concomitant]
     Active Substance: INSULIN DETEMIR
  4. POTASSIUM [Concomitant]
     Active Substance: POTASSIUM
  5. NOVOLOG [Concomitant]
     Active Substance: INSULIN ASPART
  6. SPIRONOLACTONE. [Concomitant]
     Active Substance: SPIRONOLACTONE
  7. TRULICITY [Concomitant]
     Active Substance: DULAGLUTIDE
  8. MOVANTIK [Suspect]
     Active Substance: NALOXEGOL OXALATE
     Dosage: 25 MG, 1X/DAY
     Route: 048
     Dates: start: 20191113
  9. CITALOPRAM [Concomitant]
     Active Substance: CITALOPRAM HYDROBROMIDE
  10. MONTELUKAST [Concomitant]
     Active Substance: MONTELUKAST SODIUM
  11. TORSEMIDE. [Concomitant]
     Active Substance: TORSEMIDE

REACTIONS (2)
  - Off label use [Recovered/Resolved]
  - Death [Fatal]
